FAERS Safety Report 5122955-2 (Version None)
Quarter: 2006Q4

REPORT INFORMATION
  Report Type: 
  Country: None (occurrence: None)
  Receive Date: 20061009
  Receipt Date: 20060904
  Transmission Date: 20070319
  Serious: Yes (Death, Hospitalization)
  Sender: FDA-Public Use
  Company Number: IE-ROCHE-462000

PATIENT
  Age: 55 Year
  Sex: Male
  Weight: 65 kg

DRUGS (4)
  1. XELODA [Suspect]
     Indication: COLORECTAL CANCER STAGE IV
     Route: 065
  2. NEORECORMON [Suspect]
     Indication: ANAEMIA OF MALIGNANT DISEASE
     Dosage: STRENGTH REPORTED AS 30,000 IU.
     Route: 058
     Dates: start: 20060615
  3. AVASTIN [Suspect]
     Indication: COLORECTAL CANCER STAGE IV
     Route: 042
     Dates: start: 20060615
  4. OXALIPLATIN [Concomitant]
     Indication: COLORECTAL CANCER STAGE IV

REACTIONS (2)
  - DISEASE PROGRESSION [None]
  - INTESTINAL PERFORATION [None]
